FAERS Safety Report 7727349-9 (Version None)
Quarter: 2011Q3

REPORT INFORMATION
  Report Type: 
  Country: None (occurrence: None)
  Receive Date: 20110902
  Receipt Date: 20110825
  Transmission Date: 20111222
  Serious: Yes (Hospitalization)
  Sender: FDA-Public Use
  Company Number: CN-JNJFOC-20110803991

PATIENT
  Age: 8 Month
  Sex: Female

DRUGS (4)
  1. IBUPROFEN [Suspect]
  2. ANTI-VIRUS MEDICATION [Concomitant]
     Indication: ANTIVIRAL TREATMENT
  3. IBUPROFEN [Suspect]
     Indication: PYREXIA
     Dosage: 1.875 ML
     Dates: start: 20110805, end: 20110805
  4. ALL OTHER THERAPEUTIC PRODUCTS [Concomitant]
     Indication: PYREXIA
     Route: 054

REACTIONS (3)
  - SEPTIC SHOCK [None]
  - INCORRECT DOSE ADMINISTERED [None]
  - RASH [None]
